FAERS Safety Report 4649879-9 (Version None)
Quarter: 2005Q2

REPORT INFORMATION
  Report Type: 
  Country: None (occurrence: None)
  Receive Date: 20050502
  Receipt Date: 20050428
  Transmission Date: 20051028
  Serious: Yes (Other)
  Sender: FDA-Public Use
  Company Number: PHEH2005US04916

PATIENT
  Sex: Female

DRUGS (3)
  1. LESCOL [Suspect]
  2. PREMARIN [Concomitant]
  3. CONCERTA [Concomitant]

REACTIONS (1)
  - HYPOTENSION [None]
